FAERS Safety Report 19459724 (Version 1)
Quarter: 2021Q2

REPORT INFORMATION
  Report Type: Spontaneous
  Country: US (occurrence: US)
  Receive Date: 20210624
  Receipt Date: 20210624
  Transmission Date: 20210717
  Serious: Yes (Hospitalization, Other)
  Sender: FDA-Public Use
  Company Number: US-TEVA-2021-US-1924585

PATIENT
  Age: 26 Year
  Sex: Female

DRUGS (7)
  1. USTEKINUMAB [Suspect]
     Active Substance: USTEKINUMAB
     Indication: CROHN^S DISEASE
     Route: 065
  2. AZITHROMYCIN ANHYDROUS. [Concomitant]
     Active Substance: AZITHROMYCIN ANHYDROUS
     Indication: MYCOBACTERIUM FORTUITUM INFECTION
     Dosage: UNDERWENT DESENTISATION AND COMPLETED TWELVE DAYS OF TREATMENT INTRAVENOUSLY
     Route: 042
  3. LEVOFLOXACIN. [Concomitant]
     Active Substance: LEVOFLOXACIN
     Indication: MYCOBACTERIUM FORTUITUM INFECTION
     Route: 048
  4. IMIPENEM [Concomitant]
     Active Substance: IMIPENEM
     Indication: MYCOBACTERIUM FORTUITUM INFECTION
     Route: 042
  5. IMIPENEM [Concomitant]
     Active Substance: IMIPENEM
     Indication: MYCOBACTERIUM FORTUITUM INFECTION
     Route: 042
  6. PREDNISONE. [Suspect]
     Active Substance: PREDNISONE
     Indication: CROHN^S DISEASE
     Route: 065
  7. AMIKACIN. [Suspect]
     Active Substance: AMIKACIN
     Indication: MYCOBACTERIUM FORTUITUM INFECTION
     Route: 042

REACTIONS (3)
  - Tinnitus [Unknown]
  - Mycobacterium fortuitum infection [Recovering/Resolving]
  - Device related infection [Recovering/Resolving]
